FAERS Safety Report 18186920 (Version 1)
Quarter: 2020Q3

REPORT INFORMATION
  Report Type: Spontaneous
  Country: US (occurrence: US)
  Receive Date: 20200824
  Receipt Date: 20200824
  Transmission Date: 20201103
  Serious: No
  Sender: FDA-Public Use
  Company Number: US-JNJFOC-20200830696

PATIENT
  Age: 61 Year
  Sex: Male
  Weight: 99.88 kg

DRUGS (4)
  1. CIALIS [Concomitant]
     Active Substance: TADALAFIL
  2. MINOCYCLINE HYDROCHLORIDE. [Concomitant]
     Active Substance: MINOCYCLINE HYDROCHLORIDE
  3. METOPROLOL. [Concomitant]
     Active Substance: METOPROLOL
  4. XARELTO [Suspect]
     Active Substance: RIVAROXABAN
     Indication: DEEP VEIN THROMBOSIS
     Dosage: INITIATED WITH 15 MG TWICE A DAY FOR 2 WEEKS AND THEN 20 MG FOR 2 MONTHS INTO 6 MONTH TREATMENT^ OR
     Route: 048

REACTIONS (1)
  - Anal fissure haemorrhage [Unknown]

NARRATIVE: CASE EVENT DATE: 20200809
